FAERS Safety Report 21961725 (Version 1)
Quarter: 2023Q1

REPORT INFORMATION
  Report Type: Spontaneous
  Country: US (occurrence: None)
  Receive Date: 20230204
  Receipt Date: 20230204
  Transmission Date: 20230418
  Serious: Yes (Life-Threatening, Disabling)
  Sender: FDA-Public Use
  Company Number: None

PATIENT
  Age: 27 Year
  Sex: Male
  Weight: 56.25 kg

DRUGS (1)
  1. HERBALS\MITRAGYNINE [Suspect]
     Active Substance: HERBALS\MITRAGYNINE
     Indication: Dependence
     Dosage: FREQUENCY : 4 TIMES A DAY;?
     Route: 048
     Dates: start: 20220201, end: 20230204

REACTIONS (7)
  - Drug dependence [None]
  - Withdrawal syndrome [None]
  - Eye disorder [None]
  - Skin exfoliation [None]
  - Skin discolouration [None]
  - Product complaint [None]
  - Unevaluable event [None]

NARRATIVE: CASE EVENT DATE: 20230202
